FAERS Safety Report 4316523-X (Version None)
Quarter: 2004Q1

REPORT INFORMATION
  Report Type: 
  Country: None (occurrence: None)
  Receive Date: 20040312
  Receipt Date: 20040203
  Transmission Date: 20041129
  Serious: Yes (Hospitalization)
  Sender: FDA-Public Use
  Company Number: WAES 0402USA00254

PATIENT
  Age: 63 Year
  Sex: Male

DRUGS (12)
  1. AMIODARONE [Concomitant]
  2. NORVASC [Concomitant]
  3. ASPIRIN [Concomitant]
  4. FUROSEMIDE [Concomitant]
  5. GLYBURIDE [Concomitant]
  6. HYDRALAZINE [Concomitant]
  7. ISOSORBIDE [Concomitant]
  8. CLARITIN-D [Concomitant]
  9. ZAROXOLYN [Concomitant]
  10. METOPROLOL [Concomitant]
  11. ACTOS [Suspect]
     Route: 048
  12. VIOXX [Suspect]
     Route: 048

REACTIONS (7)
  - ARTHRALGIA [None]
  - CARDIAC FAILURE CONGESTIVE [None]
  - HAEMORRHAGE [None]
  - LACERATION [None]
  - OEDEMA PERIPHERAL [None]
  - PNEUMONIA [None]
  - RENAL IMPAIRMENT [None]
